FAERS Safety Report 18124403 (Version 3)
Quarter: 2020Q3

REPORT INFORMATION
  Report Type: Spontaneous
  Country: US (occurrence: US)
  Receive Date: 20200807
  Receipt Date: 20200918
  Transmission Date: 20201103
  Serious: Yes (Other)
  Sender: FDA-Public Use
  Company Number: US-PFIZER INC-2016263051

PATIENT
  Age: 53 Year
  Sex: Female

DRUGS (2)
  1. DEPO?PROVERA [Concomitant]
     Active Substance: MEDROXYPROGESTERONE ACETATE
     Dosage: 150 MG, EVERY 3 MONTHS
     Route: 030
  2. LYRICA [Suspect]
     Active Substance: PREGABALIN
     Indication: NEUROPATHY PERIPHERAL
     Dosage: 100 MG, 2X/DAY
     Route: 048

REACTIONS (5)
  - Frustration tolerance decreased [Unknown]
  - Diabetes mellitus [Unknown]
  - Drug ineffective [Unknown]
  - Insomnia [Unknown]
  - Illness [Unknown]
